FAERS Safety Report 7611388-2 (Version None)
Quarter: 2011Q3

REPORT INFORMATION
  Report Type: 
  Country: None (occurrence: None)
  Receive Date: 20110715
  Receipt Date: 20110621
  Transmission Date: 20111222
  Serious: Yes (Other)
  Sender: FDA-Public Use
  Company Number: US-ROCHE-779996

PATIENT
  Sex: Male
  Weight: 150 kg

DRUGS (14)
  1. LEVEMIR [Concomitant]
     Dosage: 20 - 30 CLICKS AM, 15- 20 PM. AS OF 01 APRIL 2011.
  2. ACTEMRA [Suspect]
     Indication: RHEUMATOID ARTHRITIS
     Route: 042
     Dates: start: 20110304, end: 20110304
  3. FOLIC ACID [Concomitant]
     Dosage: IN AM AS OF 01 APRIL 2011.
  4. VIT D [Concomitant]
     Dosage: 2000 PER DAY:AS OF 01 APRIL 2011.
  5. ASPIRIN [Concomitant]
     Dosage: IN AM: AS OF 01 APRIL 2011.
  6. RAMIPRIL [Concomitant]
     Dosage: AS OF 01 APRIL 2011.
  7. GEMFIBROZIL [Concomitant]
     Dosage: 1 TABLET TWICE A DAY: AS OF 01 APRIL 2011.
  8. FISH OIL [Concomitant]
     Dosage: FISH OIL (OMEGA 3 AND 6) 2000 MG DAY. AS OF 01 APRIL 2011.
  9. ACTEMRA [Suspect]
     Dosage: ONE HOUR/ MONTH INFUSION: 12 PER YEAR.
     Route: 042
     Dates: start: 20110309, end: 20110429
  10. METFORMIN HCL [Concomitant]
     Dosage: 1 TABLET TWICE A DAY: AS OF 01 APRIL 2011. DRUG REPORTED: ACTO PLUS MET.
  11. NOVOLOG [Concomitant]
     Dosage: MIX INSULIN 100AM/ 100PM - MAX 300 UNITS PER DAY.
  12. VYTORIN [Concomitant]
     Dosage: 10/40 ONE/ DAY: AS OF 01 APRIL 2011.
  13. GABAPENTIN [Concomitant]
     Dosage: TWO CAPS/ DAY. AS OF 01 APRIL 2011.
  14. MULTI-VITAMIN [Concomitant]
     Dosage: IN AM: AS OF 01 APRIL 2011.

REACTIONS (4)
  - GLYCOSYLATED HAEMOGLOBIN DECREASED [None]
  - WEIGHT INCREASED [None]
  - DRUG INEFFECTIVE [None]
  - BLOOD GLUCOSE INCREASED [None]
